FAERS Safety Report 7752927-0 (Version None)
Quarter: 2011Q3

REPORT INFORMATION
  Report Type: 
  Country: None (occurrence: None)
  Receive Date: 20110915
  Receipt Date: 20110908
  Transmission Date: 20111222
  Serious: Yes (Other)
  Sender: FDA-Public Use
  Company Number: DE-AMGEN-DEUSP2011046206

PATIENT
  Age: 84 Year
  Sex: Female

DRUGS (1)
  1. PROLIA [Suspect]
     Indication: OSTEOPOROSIS
     Dosage: UNK
     Dates: start: 20101101

REACTIONS (9)
  - SHOCK [None]
  - FEELING ABNORMAL [None]
  - EATING DISORDER [None]
  - BALANCE DISORDER [None]
  - DECREASED APPETITE [None]
  - ERYTHEMA [None]
  - DYSSTASIA [None]
  - ASTHENIA [None]
  - WEIGHT DECREASED [None]
